FAERS Safety Report 9448982 (Version 5)
Quarter: 2013Q4

REPORT INFORMATION
  Report Type: Spontaneous
  Country: US (occurrence: US)
  Receive Date: 20130808
  Receipt Date: 20131206
  Transmission Date: 20140711
  Serious: Yes (Death, Other)
  Sender: FDA-Public Use
  Company Number: US-JNJFOC-20130115908

PATIENT
  Age: 42 Year
  Sex: Male
  Weight: 95.26 kg

DRUGS (5)
  1. RISPERDAL [Suspect]
     Indication: SCHIZOPHRENIA
     Route: 048
     Dates: start: 2010, end: 2011
  2. RISPERDAL [Suspect]
     Indication: BIPOLAR I DISORDER
     Route: 048
     Dates: start: 2010, end: 2011
  3. RISPERDAL CONSTA [Suspect]
     Indication: SCHIZOPHRENIA
     Route: 030
     Dates: start: 2011, end: 201105
  4. RISPERDAL CONSTA [Suspect]
     Indication: BIPOLAR DISORDER
     Route: 030
     Dates: start: 2011, end: 201105
  5. INVEGA SUSTENNA [Suspect]
     Indication: PRODUCT USED FOR UNKNOWN INDICATION
     Route: 030

REACTIONS (9)
  - Completed suicide [Fatal]
  - Tardive dyskinesia [Not Recovered/Not Resolved]
  - Drug ineffective [Unknown]
  - Tooth disorder [Not Recovered/Not Resolved]
  - Gait disturbance [Not Recovered/Not Resolved]
  - Breast tenderness [Not Recovered/Not Resolved]
  - Weight increased [Not Recovered/Not Resolved]
  - Pain [Not Recovered/Not Resolved]
  - Depression [Unknown]
